FAERS Safety Report 5163421-8 (Version None)
Quarter: 2006Q4

REPORT INFORMATION
  Report Type: 
  Country: None (occurrence: None)
  Receive Date: 20061121
  Receipt Date: 20061113
  Transmission Date: 20070319
  Serious: Yes (Other)
  Sender: FDA-Public Use
  Company Number: B0447182A

PATIENT
  Age: 67 Year
  Sex: Female
  Weight: 74.8435 kg

DRUGS (12)
  1. ESKALITH [Suspect]
     Indication: BIPOLAR DISORDER
     Dosage: 300 MG/ TWICE PER DAY/
  2. CELECOXIB [Concomitant]
  3. OESTRADIOL [Concomitant]
  4. AMITRIPTYLINE HCL [Concomitant]
  5. RABEPRAZOLE SODIUM [Concomitant]
  6. VERAPAMIL [Concomitant]
  7. ATORVASTATIN CALCIUM [Concomitant]
  8. LEVOTHYROXINE SODIUM [Concomitant]
  9. ASCORBIC ACID [Concomitant]
  10. VITAMIN E [Concomitant]
  11. FOLIC ACID [Concomitant]
  12. CYANOCOBALAMIN [Concomitant]

REACTIONS (2)
  - HYPERPARATHYROIDISM [None]
  - RENAL FAILURE CHRONIC [None]
